FAERS Safety Report 4362861-4 (Version None)
Quarter: 2004Q2

REPORT INFORMATION
  Report Type: 
  Country: None (occurrence: None)
  Receive Date: 20040518
  Receipt Date: 20030919
  Transmission Date: 20050107
  Serious: Yes (Hospitalization)
  Sender: FDA-Public Use
  Company Number: 2003-FF-00467FF

PATIENT
  Age: 62 Year
  Sex: Male

DRUGS (3)
  1. MOBIC [Suspect]
     Indication: INFLAMMATION
     Dosage: 15 MG (MG) PO
     Route: 048
  2. SOPROL (BISOPROLOL FUMARATE) [Concomitant]
  3. SECTRAL [Concomitant]

REACTIONS (3)
  - BLINDNESS [None]
  - EYE DISORDER [None]
  - EYE HAEMORRHAGE [None]
